FAERS Safety Report 9559917 (Version 1)
Quarter: 2013Q3

REPORT INFORMATION
  Report Type: Spontaneous
  Country: US (occurrence: US)
  Receive Date: 20130927
  Receipt Date: 20130927
  Transmission Date: 20140515
  Serious: No
  Sender: FDA-Public Use
  Company Number: US-PFIZER INC-2013275538

PATIENT
  Age: 45 Year
  Sex: Female
  Weight: 63.49 kg

DRUGS (4)
  1. LYRICA [Suspect]
     Indication: FIBROMYALGIA
     Dosage: 100 MG, 1X/DAY
  2. LYRICA [Suspect]
     Dosage: 25 MG, 1X/DAY
     Dates: start: 20130601
  3. LYRICA [Suspect]
     Dosage: UNK
  4. AMBIEN CR [Concomitant]
     Dosage: 12.5 MG, 1X/DAY

REACTIONS (5)
  - Intentional drug misuse [Unknown]
  - Pain [Unknown]
  - Malaise [Unknown]
  - Decreased activity [Unknown]
  - Asthenia [Unknown]
